FAERS Safety Report 17142702 (Version 1)
Quarter: 2019Q4

REPORT INFORMATION
  Report Type: Spontaneous
  Country: DE (occurrence: DE)
  Receive Date: 20191211
  Receipt Date: 20191211
  Transmission Date: 20200122
  Serious: Yes (Other)
  Sender: FDA-Public Use
  Company Number: DE-PFIZER INC-2019531828

PATIENT
  Age: 56 Year
  Sex: Female

DRUGS (7)
  1. XELJANZ [Suspect]
     Active Substance: TOFACITINIB CITRATE
     Indication: RHEUMATOID ARTHRITIS
     Dosage: 10 MG, 1X/DAY (2 X 5 MG)
     Dates: start: 201903
  2. XELJANZ [Suspect]
     Active Substance: TOFACITINIB CITRATE
     Indication: COLITIS ULCERATIVE
  3. HYDROCORTISON [Concomitant]
     Active Substance: HYDROCORTISONE
     Dosage: 25 MG, 1X/DAY; 20 MG -0-5 MG
  4. AMLODIPINE [Concomitant]
     Active Substance: AMLODIPINE BESYLATE
     Dosage: UNK
  5. CLAVERSAL MIKROPELLETS [Concomitant]
     Dosage: 1 DF, UNK; 1-0-1
  6. VIGANTOLETTEN [Concomitant]
     Active Substance: CHOLECALCIFEROL
     Dosage: UNK
  7. CLAVERSAL [Concomitant]
     Active Substance: MESALAMINE
     Dosage: 1 DF, 1X/DAY (1 TO NIGHT)

REACTIONS (8)
  - Retinal vein thrombosis [Unknown]
  - Vasculitis [Unknown]
  - Retinal disorder [Unknown]
  - Visual acuity reduced [Not Recovered/Not Resolved]
  - Retinal haemorrhage [Unknown]
  - Necrotising retinitis [Unknown]
  - Optic ischaemic neuropathy [Unknown]
  - Retinal ischaemia [Unknown]

NARRATIVE: CASE EVENT DATE: 201911
